FAERS Safety Report 7806514-6 (Version None)
Quarter: 2011Q4

REPORT INFORMATION
  Report Type: 
  Country: None (occurrence: None)
  Receive Date: 20111011
  Receipt Date: 20110929
  Transmission Date: 20120403
  Serious: Yes (Other)
  Sender: FDA-Public Use
  Company Number: JP-PFIZER INC-2011240102

PATIENT
  Age: 70 Year
  Sex: Male
  Weight: 61.6 kg

DRUGS (3)
  1. LASIX [Concomitant]
     Dosage: UNK
     Route: 048
     Dates: start: 20110210
  2. ATORVASTATIN CALCIUM [Suspect]
     Indication: HYPERCHOLESTEROLAEMIA
     Dosage: 5 MG, 1X/DAY
     Route: 048
     Dates: start: 20101208, end: 20110112
  3. ATORVASTATIN CALCIUM [Suspect]
     Dosage: 10 MG, 1X/DAY
     Route: 048
     Dates: start: 20110113

REACTIONS (2)
  - IGA NEPHROPATHY [None]
  - HERPES ZOSTER [None]
